FAERS Safety Report 26028293 (Version 3)
Quarter: 2025Q4

REPORT INFORMATION
  Report Type: Other
  Country: EU (occurrence: EU)
  Receive Date: 20251111
  Receipt Date: 20251211
  Transmission Date: 20260117
  Serious: Yes (Other)
  Sender: INCYTE
  Company Number: None

PATIENT
  Age: 78 Year

DRUGS (5)
  1. OPZELURA [Suspect]
     Active Substance: RUXOLITINIB PHOSPHATE
     Indication: Vitiligo
     Dosage: UNK, QD
     Route: 065
  2. OPZELURA [Suspect]
     Active Substance: RUXOLITINIB PHOSPHATE
     Dosage: UNK
  3. OPZELURA [Suspect]
     Active Substance: RUXOLITINIB PHOSPHATE
     Dosage: NOT ADMINISTERED
  4. MYROSOR [Concomitant]
     Indication: Hypercholesterolaemia
     Dosage: 1 DOSAGE FORM, QD (10MG/10MG)
  5. PERINDOPRIL ARGININE [Concomitant]
     Active Substance: PERINDOPRIL ARGININE
     Indication: Hypertension
     Dosage: 5 MILLIGRAM, QD

REACTIONS (5)
  - Hypertrichosis [Not Recovered/Not Resolved]
  - Product colour issue [Not Recovered/Not Resolved]
  - Application site pruritus [Not Recovered/Not Resolved]
  - Product physical issue [Unknown]
  - Application site irritation [Unknown]
